FAERS Safety Report 8779335 (Version 2)
Quarter: 2012Q4

REPORT INFORMATION
  Report Type: 
  Country: LT (occurrence: LT)
  Receive Date: 20120911
  Receipt Date: 20121001
  Transmission Date: 20130627
  Serious: Yes (Death, Other)
  Sender: FDA-Public Use
  Company Number: LT-ABBOTT-12P-234-0978266-00

PATIENT
  Age: 51 Year
  Sex: Female
  Weight: 72 kg

DRUGS (3)
  1. SEVORANE [Suspect]
     Indication: GENERAL ANAESTHESIA
     Dosage: Inhalation using sigma-delta devise; Concentration of sevoflurane was 2-1, 5-1 percents
     Route: 055
     Dates: start: 20120808, end: 20120808
  2. TIOPENTAL [Concomitant]
     Indication: ANAESTHESIA
     Dosage: 5 mg/kg
     Route: 042
     Dates: start: 20120808, end: 20120808
  3. TRACRIUM [Concomitant]
     Indication: HYPOTONIA
     Dosage: 0.55mg/kg
     Route: 042
     Dates: start: 20120808, end: 20120808

REACTIONS (6)
  - Brain oedema [Fatal]
  - Anaphylactic reaction [Not Recovered/Not Resolved]
  - Bradycardia [Not Recovered/Not Resolved]
  - Cardiac arrest [Not Recovered/Not Resolved]
  - Blood pressure decreased [Not Recovered/Not Resolved]
  - Coma [Not Recovered/Not Resolved]
